FAERS Safety Report 5399674-0 (Version None)
Quarter: 2007Q3

REPORT INFORMATION
  Report Type: 
  Country: None (occurrence: None)
  Receive Date: 20070727
  Receipt Date: 20070716
  Transmission Date: 20080115
  Serious: Yes (Other)
  Sender: FDA-Public Use
  Company Number: US-PFIZER INC-2007059148

PATIENT
  Age: 33 Year
  Sex: Female

DRUGS (5)
  1. LITHIUM CARBONATE [Suspect]
     Indication: PSYCHOTIC DISORDER
  2. HALOPERIDOL [Suspect]
     Indication: PSYCHOTIC DISORDER
  3. RISPERIDONE [Suspect]
     Indication: PSYCHOTIC DISORDER
  4. BENZTROPEINE [Suspect]
     Indication: PSYCHOTIC DISORDER
  5. QUETIAPINE FUMARATE [Concomitant]

REACTIONS (2)
  - CATATONIA [None]
  - NEUROLEPTIC MALIGNANT SYNDROME [None]
